FAERS Safety Report 19991675 (Version 1)
Quarter: 2021Q4

REPORT INFORMATION
  Report Type: Spontaneous
  Country: US (occurrence: US)
  Receive Date: 20211025
  Receipt Date: 20211025
  Transmission Date: 20220303
  Serious: No
  Sender: FDA-Public Use
  Company Number: US-PFIZER INC-2021384782

PATIENT
  Age: 80 Year
  Sex: Male
  Weight: 68.04 kg

DRUGS (1)
  1. XALATAN [Suspect]
     Active Substance: LATANOPROST
     Indication: Ocular hypertension
     Dosage: ONE DROP BEFORE SLEEPING FOR EACH EYE

REACTIONS (3)
  - Intentional product misuse [Unknown]
  - Foreign body sensation in eyes [Unknown]
  - Vision blurred [Unknown]
